FAERS Safety Report 8672321 (Version 3)
Quarter: 2013Q4

REPORT INFORMATION
  Report Type: Spontaneous
  Country: US (occurrence: US)
  Receive Date: 20120719
  Receipt Date: 20131101
  Transmission Date: 20140711
  Serious: No
  Sender: FDA-Public Use
  Company Number: US-009507513-1207USA002610

PATIENT
  Age: 63 Year
  Sex: Male
  Weight: 83.45 kg

DRUGS (3)
  1. PEGINTRON [Suspect]
     Indication: HEPATITIS C
     Dosage: 150 UNK, QW
     Dates: start: 20120106, end: 20120705
  2. VICTRELIS [Suspect]
     Dosage: 2 DF, TID
     Route: 048
     Dates: start: 20120127, end: 20120705
  3. RIBASPHERE [Suspect]
     Dosage: 3 DF, BID
     Route: 048
     Dates: start: 20120106, end: 20120705

REACTIONS (3)
  - Viral load increased [Unknown]
  - Anaemia [Recovered/Resolved]
  - Drug ineffective [Unknown]
